FAERS Safety Report 12270129 (Version 1)
Quarter: 2016Q2

REPORT INFORMATION
  Report Type: Spontaneous
  Country: US (occurrence: US)
  Receive Date: 20160415
  Receipt Date: 20160415
  Transmission Date: 20160815
  Serious: Yes (Other)
  Sender: FDA-Public Use
  Company Number: US-CIPLA LTD.-2016US03711

PATIENT

DRUGS (1)
  1. RISPERIDONE. [Suspect]
     Active Substance: RISPERIDONE
     Dosage: UNK
     Route: 065

REACTIONS (4)
  - Product substitution issue [Unknown]
  - Psychomotor hyperactivity [Recovered/Resolved]
  - Mental impairment [Recovered/Resolved]
  - Irritability [Recovered/Resolved]
